FAERS Safety Report 12664771 (Version 2)
Quarter: 2016Q3

REPORT INFORMATION
  Report Type: Spontaneous
  Country: NL (occurrence: NL)
  Receive Date: 20160818
  Receipt Date: 20160901
  Transmission Date: 20161109
  Serious: Yes (Death)
  Sender: FDA-Public Use
  Company Number: NL-PFIZER INC-2016377207

PATIENT
  Age: 46 Year
  Sex: Female

DRUGS (4)
  1. TAMOXIFEN [Suspect]
     Active Substance: TAMOXIFEN
     Indication: INTRADUCTAL PROLIFERATIVE BREAST LESION
  2. CYCLOFOSFAMIDE SANDOZ [Suspect]
     Active Substance: CYCLOPHOSPHAMIDE
     Indication: INTRADUCTAL PROLIFERATIVE BREAST LESION
  3. EPIRUBICIN HCL [Suspect]
     Active Substance: EPIRUBICIN HYDROCHLORIDE
     Indication: INTRADUCTAL PROLIFERATIVE BREAST LESION
  4. FLUOROURACIL. [Suspect]
     Active Substance: FLUOROURACIL
     Indication: INTRADUCTAL PROLIFERATIVE BREAST LESION

REACTIONS (1)
  - Liver injury [Fatal]
